FAERS Safety Report 11087672 (Version 1)
Quarter: 2015Q2

REPORT INFORMATION
  Report Type: Spontaneous
  Country: CA (occurrence: CA)
  Receive Date: 20150504
  Receipt Date: 20150504
  Transmission Date: 20150821
  Serious: Yes (Hospitalization, Other)
  Sender: FDA-Public Use
  Company Number: CA-PFIZER INC-2015147652

PATIENT
  Sex: Male

DRUGS (13)
  1. LONITEN [Suspect]
     Active Substance: MINOXIDIL
     Indication: HYPERTENSION
     Dosage: 2.5 MG, 3X/DAY
     Route: 048
  2. DIANEAL [Suspect]
     Active Substance: CALCIUM CHLORIDE\DEXTROSE\MAGNESIUM CHLORIDE\SODIUM CHLORIDE\SODIUM LACTATE
     Indication: PERITONEAL DIALYSIS
     Dosage: 1X/DAY
     Route: 033
  3. ROSUVASTATIN [Concomitant]
     Active Substance: ROSUVASTATIN
  4. ZAROXOLYN [Concomitant]
     Active Substance: METOLAZONE
  5. ATENOLOL BP [Suspect]
     Active Substance: ATENOLOL
     Indication: HYPERTENSION
     Dosage: 50 MG, 2X/DAY
     Route: 048
  6. EXTRANEAL [Suspect]
     Active Substance: CALCIUM CHLORIDE\ICODEXTRIN\MAGNESIUM CHLORIDE\SODIUM CHLORIDE\SODIUM LACTATE
     Indication: PERITONEAL DIALYSIS
     Route: 033
  7. CLONIDINE. [Concomitant]
     Active Substance: CLONIDINE
  8. ASPIRIN. [Concomitant]
     Active Substance: ASPIRIN
  9. FUROSEMIDE. [Concomitant]
     Active Substance: FUROSEMIDE
  10. ROCALTROL [Concomitant]
     Active Substance: CALCITRIOL
  11. CANDESARTAN CILEXETIL. [Suspect]
     Active Substance: CANDESARTAN CILEXETIL
     Indication: HYPERTENSION
     Dosage: 32 MG, 2X/DAY
     Route: 048
  12. AMLODIPINE BESILATE [Suspect]
     Active Substance: AMLODIPINE BESYLATE
     Indication: HYPERTENSION
     Dosage: 10 MG, 1X/DAY
     Route: 048
  13. CALCIUM [Concomitant]
     Active Substance: CALCIUM

REACTIONS (7)
  - Blood pressure abnormal [Unknown]
  - Burning sensation [Unknown]
  - Constipation [Unknown]
  - Catheter site pain [Unknown]
  - Cerebrovascular accident [Unknown]
  - Peritoneal dialysis complication [Unknown]
  - Peritonitis bacterial [Unknown]
